FAERS Safety Report 6403509-4 (Version None)
Quarter: 2009Q4

REPORT INFORMATION
  Report Type: 
  Country: None (occurrence: None)
  Receive Date: 20091016
  Receipt Date: 20091006
  Transmission Date: 20100525
  Serious: Yes (Hospitalization)
  Sender: FDA-Public Use
  Company Number: JP-AVENTIS-200912233JP

PATIENT
  Age: 29 Year
  Sex: Male
  Weight: 70 kg

DRUGS (7)
  1. LANTUS [Suspect]
     Route: 058
     Dates: end: 20081001
  2. HUMALOG [Suspect]
     Dosage: DOSE: 10 UNITS X 3/DAY
     Route: 058
     Dates: start: 20060401, end: 20081006
  3. HUMULIN N [Suspect]
     Dosage: DOSE: 4-22 UNITS
     Route: 058
     Dates: end: 20090207
  4. MELBIN                             /00082702/ [Concomitant]
     Route: 048
     Dates: start: 20081206
  5. SEIBULE [Concomitant]
     Route: 048
  6. ACTOS [Concomitant]
     Route: 048
  7. BEZATOL [Concomitant]
     Route: 048

REACTIONS (4)
  - ANTI-INSULIN ANTIBODY POSITIVE [None]
  - DIABETIC KETOACIDOSIS [None]
  - DRUG EFFECT DECREASED [None]
  - HYPERGLYCAEMIA [None]
